FAERS Safety Report 21627491 (Version 1)
Quarter: 2022Q4

REPORT INFORMATION
  Report Type: Spontaneous
  Country: US (occurrence: None)
  Receive Date: 20221121
  Receipt Date: 20221121
  Transmission Date: 20230112
  Serious: Yes (Other)
  Sender: FDA-Public Use
  Company Number: None

PATIENT
  Age: 72 Year
  Sex: Male

DRUGS (2)
  1. PHOSPHOLINE IODIDE [Suspect]
     Active Substance: ECHOTHIOPHATE IODIDE
     Indication: Open angle glaucoma
     Dosage: FREQUENCY : 3 TIMES A DAY;?
     Route: 047
     Dates: start: 20220625
  2. PHOSPHOLINE IODIDE [Suspect]
     Active Substance: ECHOTHIOPHATE IODIDE
     Dosage: FREQUENCY : 3 TIMES A DAY;?
     Route: 047

REACTIONS (4)
  - Product dose omission issue [None]
  - Economic problem [None]
  - Intraocular pressure increased [None]
  - Blindness unilateral [None]

NARRATIVE: CASE EVENT DATE: 20221118
